FAERS Safety Report 5924694-4 (Version None)
Quarter: 2008Q4

REPORT INFORMATION
  Report Type: 
  Country: None (occurrence: None)
  Receive Date: 20081016
  Receipt Date: 20081006
  Transmission Date: 20090506
  Serious: Yes (Hospitalization, Other)
  Sender: FDA-Public Use
  Company Number: ANTA0800153

PATIENT
  Age: 74 Year
  Sex: Male

DRUGS (4)
  1. FENOFIBRATE [Suspect]
     Indication: BLOOD TRIGLYCERIDES INCREASED
     Dosage: 267 MG,
  2. BISOPROLOL FUMARATE [Concomitant]
  3. DOXAZOSIN (DOXAZOSIN) [Concomitant]
  4. ASPIRIN [Concomitant]

REACTIONS (9)
  - CONSTIPATION [None]
  - DEEP VEIN THROMBOSIS [None]
  - IMMOBILE [None]
  - METABOLIC ACIDOSIS [None]
  - PLEURITIC PAIN [None]
  - PULMONARY ARTERY THROMBOSIS [None]
  - PULMONARY EMBOLISM [None]
  - RENAL FAILURE ACUTE [None]
  - RHABDOMYOLYSIS [None]
